FAERS Safety Report 9855222 (Version 1)
Quarter: 2014Q1

REPORT INFORMATION
  Report Type: Report from Study
  Country: NL (occurrence: NL)
  Receive Date: 20140130
  Receipt Date: 20140130
  Transmission Date: 20141002
  Serious: Yes (Other)
  Sender: FDA-Public Use
  Company Number: NL-B.I. PHARMACEUTICALS,INC./RIDGEFIELD-2014-BI-03182NL

PATIENT
  Age: 65 Year
  Sex: Male
  Weight: 93 kg

DRUGS (4)
  1. PRADAXA [Suspect]
     Indication: ATRIAL FIBRILLATION
     Dosage: 300 MG
     Dates: start: 201211, end: 201311
  2. GEMFIBROZIL [Concomitant]
     Dosage: 600 MG
  3. METOPROLOL [Concomitant]
     Dosage: 50 MG
  4. ALLOPURINOL [Concomitant]
     Dosage: 100 MG
     Dates: end: 201311

REACTIONS (1)
  - Renal failure [Recovered/Resolved with Sequelae]
